FAERS Safety Report 5606694-7 (Version None)
Quarter: 2008Q1

REPORT INFORMATION
  Report Type: 
  Country: None (occurrence: None)
  Receive Date: 20080129
  Receipt Date: 20070413
  Transmission Date: 20080703
  Serious: No
  Sender: FDA-Public Use
  Company Number: A0645966A

PATIENT
  Sex: Female

DRUGS (2)
  1. EPIVIR [Suspect]
     Indication: ANTIVIRAL PROPHYLAXIS
     Route: 048
     Dates: start: 20060101
  2. RETROVIR [Suspect]
     Indication: ANTIVIRAL PROPHYLAXIS
     Route: 048

REACTIONS (1)
  - VITAMIN B12 DEFICIENCY [None]
